FAERS Safety Report 8930747 (Version 1)
Quarter: 2012Q4

REPORT INFORMATION
  Report Type: Report from Study
  Country: JP (occurrence: JP)
  Receive Date: 20121128
  Receipt Date: 20121128
  Transmission Date: 20130627
  Serious: Yes (Hospitalization, Other)
  Sender: FDA-Public Use
  Company Number: JP-VERTEX PHARMACEUTICAL INC.-AE-2012-003438

PATIENT
  Age: 55 Year
  Sex: Male

DRUGS (13)
  1. VX-950 (TELAPREVIR) [Suspect]
     Indication: CHRONIC HEPATITIS C
     Dosage: 2250 mg, qd
     Route: 048
     Dates: start: 20120121, end: 20120229
  2. VX-950 (TELAPREVIR) [Suspect]
     Dosage: 1500 mg, qd
     Route: 048
     Dates: start: 20120301, end: 20120414
  3. PEGINTRON                          /01543001/ [Suspect]
     Indication: CHRONIC HEPATITIS C
     Dosage: 1.48 ?g/kg, qw
     Route: 058
     Dates: start: 20120121, end: 20120217
  4. PEGINTRON                          /01543001/ [Suspect]
     Dosage: 1.38 ?g/kg, qw
     Route: 058
     Dates: start: 20120218, end: 20120302
  5. PEGINTRON                          /01543001/ [Suspect]
     Dosage: 1.1 ?g/kg, qw
     Route: 058
     Dates: start: 20120303, end: 20120323
  6. PEGINTRON                          /01543001/ [Suspect]
     Dosage: 1.23 ?g/kg, qw
     Route: 058
     Dates: start: 20120324
  7. REBETOL [Suspect]
     Indication: CHRONIC HEPATITIS C
     Dosage: 1000 mg, qd
     Route: 048
     Dates: start: 20120121, end: 20120203
  8. REBETOL [Suspect]
     Dosage: 800 mg, qd
     Route: 048
     Dates: start: 20120204, end: 20120310
  9. REBETOL [Suspect]
     Dosage: 400 mg, qd
     Route: 048
     Dates: start: 20120311, end: 20120414
  10. REBETOL [Suspect]
     Dosage: 600 mg, qd
     Route: 048
     Dates: start: 20120415, end: 20120512
  11. REBETOL [Suspect]
     Dosage: 800 mg, qd
     Route: 048
     Dates: start: 20120513
  12. XYZAL [Concomitant]
     Dosage: 5 mg, qd
     Route: 048
     Dates: start: 20120121
  13. NEXIUM                             /01479302/ [Concomitant]
     Dosage: 20 mg, qd
     Route: 048
     Dates: end: 20120512

REACTIONS (4)
  - Hepatic encephalopathy [Recovered/Resolved]
  - Dehydration [Recovered/Resolved]
  - Hyperammonaemia [Recovered/Resolved]
  - Platelet count decreased [Not Recovered/Not Resolved]
